FAERS Safety Report 25983770 (Version 2)
Quarter: 2025Q4

REPORT INFORMATION
  Report Type: Spontaneous
  Country: US (occurrence: US)
  Receive Date: 20251031
  Receipt Date: 20251223
  Transmission Date: 20260117
  Serious: Yes (Other)
  Sender: PFIZER
  Company Number: US-PFIZER INC-202500213134

PATIENT
  Age: 70 Year
  Sex: Female

DRUGS (2)
  1. PREMARIN [Suspect]
     Active Substance: ESTROGENS, CONJUGATED
     Indication: Vulvovaginal dryness
     Dosage: UNK
  2. PREMARIN [Suspect]
     Active Substance: ESTROGENS, CONJUGATED
     Indication: Vulvovaginal injury

REACTIONS (4)
  - Renal impairment [Unknown]
  - Nephrectomy [Unknown]
  - Visual impairment [Unknown]
  - Intervertebral disc compression [Unknown]

NARRATIVE: CASE EVENT DATE: 20210101
